FAERS Safety Report 24779131 (Version 1)
Quarter: 2024Q4

REPORT INFORMATION
  Report Type: Spontaneous
  Country: NO (occurrence: NO)
  Receive Date: 20241226
  Receipt Date: 20241226
  Transmission Date: 20250115
  Serious: Yes (Death)
  Sender: TEVA
  Company Number: None

PATIENT
  Age: 71 Year
  Sex: Male

DRUGS (7)
  1. ENALAPRIL [Suspect]
     Active Substance: ENALAPRIL
     Indication: Hypertension
     Dosage: 1+0+0+0: ENALAPRIL COMP RATIOPHARM
     Route: 048
     Dates: start: 20120614
  2. OZEMPIC [Suspect]
     Active Substance: SEMAGLUTIDE
     Indication: Type 2 diabetes mellitus
     Dosage: OZEMPIC ORIFARM
     Route: 058
     Dates: start: 20240312
  3. NYCOPLUS MAGNESIUM [Concomitant]
     Indication: Hypomagnesaemia
     Dosage: 1+1+1
     Route: 065
  4. ATORVASTATIN XIROMED [Concomitant]
     Indication: Hypercholesterolaemia
     Dosage: 1+0+0+0
     Route: 065
  5. DEXTROSE [Concomitant]
     Active Substance: DEXTROSE MONOHYDRATE
     Indication: Blood glucose decreased
     Route: 065
     Dates: start: 20241021
  6. GLUCOPHAGE [Concomitant]
     Active Substance: METFORMIN HYDROCHLORIDE
     Indication: Type 2 diabetes mellitus
     Dosage: 1+1+1
     Route: 065
  7. CHOLECALCIFEROL [Concomitant]
     Active Substance: CHOLECALCIFEROL
     Indication: Vitamin D deficiency
     Dosage: 1+0+0+0
     Route: 065

REACTIONS (1)
  - Hypokalaemia [Fatal]

NARRATIVE: CASE EVENT DATE: 20241021
